FAERS Safety Report 14819079 (Version 1)
Quarter: 2018Q2

REPORT INFORMATION
  Report Type: Spontaneous
  Country: US (occurrence: US)
  Receive Date: 20180420
  Receipt Date: 20180420
  Transmission Date: 20180711
  Serious: No
  Sender: FDA-Public Use
  Company Number: None

PATIENT
  Sex: Female

DRUGS (2)
  1. FOLIC ACID 1 MG GENERIC [Suspect]
     Active Substance: FOLIC ACID
     Indication: RHEUMATOID ARTHRITIS
     Route: 048
     Dates: start: 201402
  2. METHOTREXATE 2.5MG GENERIC [Suspect]
     Active Substance: METHOTREXATE SODIUM
     Route: 048
     Dates: start: 201402

REACTIONS (1)
  - Sinusitis [None]
